FAERS Safety Report 5069035-2 (Version None)
Quarter: 2006Q3

REPORT INFORMATION
  Report Type: 
  Country: None (occurrence: None)
  Receive Date: 20060728
  Receipt Date: 20060719
  Transmission Date: 20061208
  Serious: Yes (Life-Threatening)
  Sender: FDA-Public Use
  Company Number: T200600784

PATIENT
  Age: 75 Year
  Sex: Female

DRUGS (1)
  1. OPTIRAY 240 [Suspect]
     Indication: COMPUTERISED TOMOGRAM
     Dosage: 100 ML, SINGLE, INTRAVENOUS
     Route: 042
     Dates: start: 20060714, end: 20060714

REACTIONS (6)
  - BLOOD PRESSURE DECREASED [None]
  - CONTRAST MEDIA REACTION [None]
  - DEPRESSED LEVEL OF CONSCIOUSNESS [None]
  - FEELING COLD [None]
  - SHOCK [None]
  - WHEEZING [None]
